FAERS Safety Report 12180866 (Version 1)
Quarter: 2016Q1

REPORT INFORMATION
  Report Type: Spontaneous
  Country: US (occurrence: US)
  Receive Date: 20160315
  Receipt Date: 20160315
  Transmission Date: 20160526
  Serious: Yes (Other)
  Sender: FDA-Public Use
  Company Number: US-TEVA-642051USA

PATIENT
  Sex: Female

DRUGS (1)
  1. ZECUITY [Suspect]
     Active Substance: SUMATRIPTAN SUCCINATE
     Route: 062
     Dates: start: 2016, end: 2016

REACTIONS (7)
  - Application site necrosis [Unknown]
  - Application site discolouration [Unknown]
  - Application site paraesthesia [Unknown]
  - Skin wrinkling [Unknown]
  - Application site reaction [Unknown]
  - Application site exfoliation [Unknown]
  - Application site burn [Unknown]

NARRATIVE: CASE EVENT DATE: 2016
